FAERS Safety Report 4555788-6 (Version None)
Quarter: 2005Q1

REPORT INFORMATION
  Report Type: 
  Country: None (occurrence: None)
  Receive Date: 20050118
  Receipt Date: 20040608
  Transmission Date: 20050727
  Serious: Yes (Hospitalization)
  Sender: FDA-Public Use
  Company Number: A001-002-006098

PATIENT
  Age: 78 Year
  Sex: Female
  Weight: 58 kg

DRUGS (4)
  1. ARICEPT [Suspect]
     Indication: AMNESIA
     Dosage: 5 MG, 1 IN 1 D, ORAL
     Route: 048
     Dates: start: 20030901, end: 20040201
  2. ZOLOFT [Suspect]
     Indication: DEPRESSION
     Dosage: ORAL
     Route: 048
     Dates: start: 20030401, end: 20040201
  3. BLOOD PRESSURE PILL (UNSPECIFIED) [Concomitant]
  4. 6 OTHER MEDS [Concomitant]

REACTIONS (1)
  - HALLUCINATION [None]
